FAERS Safety Report 5993935-X (Version None)
Quarter: 2008Q4

REPORT INFORMATION
  Report Type: 
  Country: None (occurrence: None)
  Receive Date: 20081212
  Receipt Date: 20081205
  Transmission Date: 20090506
  Serious: Yes (Congenital Anomaly)
  Sender: FDA-Public Use
  Company Number: A0680877A

PATIENT
  Sex: Female
  Weight: 3 kg

DRUGS (2)
  1. PAXIL [Suspect]
     Indication: DEPRESSION
  2. VITAMIN TAB [Concomitant]

REACTIONS (2)
  - ATRIAL SEPTAL DEFECT [None]
  - DRUG EXPOSURE DURING PREGNANCY [None]
